FAERS Safety Report 4385076-2 (Version None)
Quarter: 2004Q2

REPORT INFORMATION
  Report Type: 
  Country: None (occurrence: None)
  Receive Date: 20040625
  Receipt Date: 20040616
  Transmission Date: 20050107
  Serious: Yes (Hospitalization)
  Sender: FDA-Public Use
  Company Number: PHNU2004DE02120

PATIENT
  Age: 6 Year
  Sex: Male

DRUGS (1)
  1. FORADIL [Suspect]
     Dosage: 1 DF, ONCE/SINGLE
     Route: 065
     Dates: start: 20040615, end: 20040615

REACTIONS (3)
  - ACCIDENTAL EXPOSURE [None]
  - ASPIRATION [None]
  - SENSATION OF FOREIGN BODY [None]
